FAERS Safety Report 22358867 (Version 5)
Quarter: 2025Q1

REPORT INFORMATION
  Report Type: Spontaneous
  Country: US (occurrence: US)
  Receive Date: 20230524
  Receipt Date: 20250221
  Transmission Date: 20250409
  Serious: Yes (Death, Other)
  Sender: KYOWA
  Company Number: US-KYOWAKIRIN-2023BKK007524

PATIENT

DRUGS (33)
  1. NOURIANZ [Suspect]
     Active Substance: ISTRADEFYLLINE
     Indication: Parkinson^s disease
     Dosage: 20 MG, QD (EVERY NIGHT AT BEDTIME)
     Route: 048
     Dates: start: 20230228
  2. NOURIANZ [Suspect]
     Active Substance: ISTRADEFYLLINE
     Indication: Dyskinesia
  3. NOURIANZ [Suspect]
     Active Substance: ISTRADEFYLLINE
     Indication: On and off phenomenon
  4. CARBIDOPA\LEVODOPA [Concomitant]
     Active Substance: CARBIDOPA\LEVODOPA
     Indication: Product used for unknown indication
     Route: 065
  5. CENTURY [Concomitant]
     Indication: Product used for unknown indication
     Route: 065
  6. CLONAZEPAM [Concomitant]
     Active Substance: CLONAZEPAM
     Indication: Product used for unknown indication
     Route: 065
  7. CREON [Concomitant]
     Active Substance: PANCRELIPASE AMYLASE\PANCRELIPASE LIPASE\PANCRELIPASE PROTEASE
     Indication: Product used for unknown indication
     Route: 065
  8. CREON [Concomitant]
     Active Substance: PANCRELIPASE AMYLASE\PANCRELIPASE LIPASE\PANCRELIPASE PROTEASE
     Route: 065
  9. FINASTERIDE [Concomitant]
     Active Substance: FINASTERIDE
     Indication: Product used for unknown indication
     Route: 065
  10. GABAPENTIN [Concomitant]
     Active Substance: GABAPENTIN
     Indication: Product used for unknown indication
     Route: 065
  11. GLIMEPIRIDE [Concomitant]
     Active Substance: GLIMEPIRIDE
     Indication: Product used for unknown indication
     Route: 065
  12. HUMULIN R [Concomitant]
     Active Substance: INSULIN HUMAN
     Indication: Product used for unknown indication
     Route: 065
  13. KEPPRA [Concomitant]
     Active Substance: LEVETIRACETAM
     Indication: Product used for unknown indication
     Route: 065
  14. KETOCONAZOLE [Concomitant]
     Active Substance: KETOCONAZOLE
     Indication: Product used for unknown indication
     Route: 065
  15. LANTUS SOLOSTAR [Concomitant]
     Active Substance: INSULIN GLARGINE
     Indication: Product used for unknown indication
     Route: 065
  16. LISINOPRIL [Concomitant]
     Active Substance: LISINOPRIL
     Indication: Product used for unknown indication
     Route: 065
  17. MAGNESIUM OXIDE [Concomitant]
     Active Substance: MAGNESIUM OXIDE
     Indication: Product used for unknown indication
     Route: 065
  18. METFORMIN [Concomitant]
     Active Substance: METFORMIN HYDROCHLORIDE
     Indication: Product used for unknown indication
     Route: 065
  19. VITAMINS [Concomitant]
     Active Substance: VITAMINS
     Indication: Product used for unknown indication
     Route: 065
  20. PLAVIX [Concomitant]
     Active Substance: CLOPIDOGREL BISULFATE
     Indication: Product used for unknown indication
     Route: 065
  21. POLYETHYLENE GLYCOL 3350 [Concomitant]
     Active Substance: POLYETHYLENE GLYCOL 3350
     Indication: Product used for unknown indication
     Route: 065
  22. OMEPRAZOLE [Concomitant]
     Active Substance: OMEPRAZOLE
     Indication: Product used for unknown indication
     Route: 065
  23. SERTRALINE [Concomitant]
     Active Substance: SERTRALINE HYDROCHLORIDE
     Indication: Product used for unknown indication
     Route: 065
  24. TAMSULOSIN [Concomitant]
     Active Substance: TAMSULOSIN
     Indication: Product used for unknown indication
     Route: 065
  25. TRAZODONE [Concomitant]
     Active Substance: TRAZODONE HYDROCHLORIDE
     Indication: Product used for unknown indication
     Route: 065
  26. TRIAMCINOLONE [Concomitant]
     Active Substance: TRIAMCINOLONE
     Indication: Product used for unknown indication
     Route: 065
  27. ASCORBIC ACID\BIOFLAVONOIDS [Concomitant]
     Active Substance: ASCORBIC ACID\BIOFLAVONOIDS
     Indication: Product used for unknown indication
     Route: 065
  28. VYTORIN [Concomitant]
     Active Substance: EZETIMIBE\SIMVASTATIN
     Indication: Product used for unknown indication
     Route: 065
  29. ZINC GLUCONATE [Concomitant]
     Active Substance: ZINC GLUCONATE
     Indication: Product used for unknown indication
     Route: 065
  30. OXYBUTYNIN [Concomitant]
     Active Substance: OXYBUTYNIN
     Indication: Product used for unknown indication
     Route: 065
  31. GOCOVRI [Concomitant]
     Active Substance: AMANTADINE
     Indication: Product used for unknown indication
     Route: 065
  32. GOCOVRI [Concomitant]
     Active Substance: AMANTADINE
     Route: 065
  33. GOCOVRI [Concomitant]
     Active Substance: AMANTADINE
     Route: 065

REACTIONS (6)
  - Death [Fatal]
  - Hallucination [Unknown]
  - Condition aggravated [Not Recovered/Not Resolved]
  - Hypertonic bladder [Not Recovered/Not Resolved]
  - Dizziness [Unknown]
  - Dyskinesia [Unknown]

NARRATIVE: CASE EVENT DATE: 20250201
